FAERS Safety Report 15778455 (Version 2)
Quarter: 2020Q4

REPORT INFORMATION
  Report Type: Report from Study
  Country: CN (occurrence: CN)
  Receive Date: 20181231
  Receipt Date: 20201111
  Transmission Date: 20210113
  Serious: Yes (Hospitalization)
  Sender: FDA-Public Use
  Company Number: CN-ELI_LILLY_AND_COMPANY-CN201812011525

PATIENT
  Age: 31 Year
  Sex: Female

DRUGS (2)
  1. HUMALOG [Suspect]
     Active Substance: INSULIN LISPRO
     Dosage: 16 U, EACH EVENING
     Route: 058
     Dates: start: 2010
  2. HUMALOG [Suspect]
     Active Substance: INSULIN LISPRO
     Indication: TYPE 1 DIABETES MELLITUS
     Dosage: 18 U, EACH MORNING
     Route: 058
     Dates: start: 2010

REACTIONS (12)
  - Pneumonitis [Unknown]
  - Nasopharyngitis [Unknown]
  - Hypoalbuminaemia [Unknown]
  - Spinal pain [Unknown]
  - Cough [Unknown]
  - Oedema [Unknown]
  - Pericardial effusion [Unknown]
  - Swelling [Unknown]
  - Hypertension [Unknown]
  - Anaemia [Unknown]
  - Blood glucose increased [Unknown]
  - Blood glucose decreased [Unknown]
